FAERS Safety Report 16112503 (Version 21)
Quarter: 2025Q1

REPORT INFORMATION
  Report Type: Spontaneous
  Country: US (occurrence: US)
  Receive Date: 20190325
  Receipt Date: 20250225
  Transmission Date: 20250409
  Serious: Yes (Other)
  Sender: PFIZER
  Company Number: US-PFIZER INC-2018093406

PATIENT
  Age: 68 Year
  Sex: Female

DRUGS (3)
  1. XELJANZ XR [Suspect]
     Active Substance: TOFACITINIB CITRATE
     Indication: Rheumatoid arthritis
     Dosage: 11 MG, 1X/DAY
     Route: 048
  2. XELJANZ XR [Suspect]
     Active Substance: TOFACITINIB CITRATE
     Dosage: 11 MG ORAL DAILY
     Route: 048
     Dates: start: 202401
  3. COLCHICINE [Concomitant]
     Active Substance: COLCHICINE

REACTIONS (37)
  - Atrial fibrillation [Unknown]
  - Spinal deformity [Unknown]
  - Diabetes mellitus [Unknown]
  - Neoplasm [Unknown]
  - Fall [Unknown]
  - Shoulder fracture [Unknown]
  - Rotator cuff syndrome [Unknown]
  - Muscle injury [Unknown]
  - Limb injury [Unknown]
  - Joint injury [Unknown]
  - Carpal tunnel syndrome [Unknown]
  - Foot operation [Unknown]
  - Near death experience [Recovered/Resolved]
  - Knee arthroplasty [Unknown]
  - Spinal operation [Unknown]
  - Drug ineffective [Unknown]
  - Condition aggravated [Unknown]
  - Gout [Unknown]
  - Malaise [Unknown]
  - Body temperature increased [Unknown]
  - Gait disturbance [Unknown]
  - Muscle spasms [Unknown]
  - Arthritis [Unknown]
  - Foot deformity [Recovered/Resolved]
  - COVID-19 [Recovered/Resolved]
  - Blood uric acid decreased [Unknown]
  - Joint injury [Unknown]
  - Peripheral swelling [Unknown]
  - Joint range of motion decreased [Unknown]
  - Suture insertion [Unknown]
  - Weight increased [Unknown]
  - Night blindness [Unknown]
  - Degenerative bone disease [Unknown]
  - Neck injury [Unknown]
  - Vulvovaginal pruritus [Not Recovered/Not Resolved]
  - Dizziness [Not Recovered/Not Resolved]
  - Dizziness postural [Not Recovered/Not Resolved]

NARRATIVE: CASE EVENT DATE: 20190401
